FAERS Safety Report 15582034 (Version 2)
Quarter: 2018Q4

REPORT INFORMATION
  Report Type: Spontaneous
  Country: US (occurrence: US)
  Receive Date: 20181105
  Receipt Date: 20181108
  Transmission Date: 20190205
  Serious: Yes (Other)
  Sender: FDA-Public Use
  Company Number: US-BEH-2018096467

PATIENT
  Age: 45 Year
  Sex: Female

DRUGS (2)
  1. HIZENTRA [Suspect]
     Active Substance: HUMAN IMMUNOGLOBULIN G
     Indication: IMMUNODEFICIENCY COMMON VARIABLE
     Dosage: 4 SITES
     Route: 058
     Dates: start: 2015
  2. HIZENTRA [Suspect]
     Active Substance: HUMAN IMMUNOGLOBULIN G
     Dosage: 4 SITES
     Route: 058
     Dates: start: 20181025

REACTIONS (9)
  - Infusion site pain [Recovered/Resolved]
  - Infusion site pain [Unknown]
  - Infusion site erythema [Recovered/Resolved]
  - Infusion site swelling [Recovered/Resolved]
  - Infusion site swelling [Unknown]
  - Lymphadenopathy [Unknown]
  - Infusion site warmth [Recovered/Resolved]
  - Infusion site warmth [Unknown]
  - Infusion site erythema [Unknown]

NARRATIVE: CASE EVENT DATE: 20181025
